FAERS Safety Report 6178126-4 (Version None)
Quarter: 2009Q2

REPORT INFORMATION
  Report Type: 
  Country: None (occurrence: None)
  Receive Date: 20090504
  Receipt Date: 20090428
  Transmission Date: 20091009
  Serious: Yes (Death, Hospitalization)
  Sender: FDA-Public Use
  Company Number: PHHY2009CH07308

PATIENT
  Age: 72 Year
  Sex: Male

DRUGS (1)
  1. GLEEVEC [Suspect]
     Indication: GASTROINTESTINAL STROMAL TUMOUR
     Dosage: 600 MG/D

REACTIONS (11)
  - ANAEMIA [None]
  - BLOOD BILIRUBIN INCREASED [None]
  - DISEASE PROGRESSION [None]
  - EMPHYSEMA [None]
  - HEPATOTOXICITY [None]
  - LIVER FUNCTION TEST ABNORMAL [None]
  - MYELODYSPLASTIC SYNDROME [None]
  - NON-HODGKIN'S LYMPHOMA [None]
  - PANCYTOPENIA [None]
  - PYREXIA [None]
  - TRANSAMINASES INCREASED [None]
